FAERS Safety Report 18466826 (Version 1)
Quarter: 2020Q4

REPORT INFORMATION
  Report Type: Report from Study
  Country: US (occurrence: US)
  Receive Date: 20201105
  Receipt Date: 20201105
  Transmission Date: 20210114
  Serious: Yes (Other)
  Sender: FDA-Public Use
  Company Number: US-GILEAD-2020-0502420

PATIENT
  Age: 31 Year
  Sex: Male

DRUGS (5)
  1. SODIUM CHLORIDE. [Concomitant]
     Active Substance: SODIUM CHLORIDE
  2. COLISTIMETHATE SODIUM. [Concomitant]
     Active Substance: COLISTIMETHATE SODIUM
  3. AZTREONAM LYSINE [Suspect]
     Active Substance: AZTREONAM LYSINE
     Indication: PSEUDOMONAS INFECTION
  4. STERILE WATER [Concomitant]
     Active Substance: WATER
  5. AZTREONAM LYSINE [Suspect]
     Active Substance: AZTREONAM LYSINE
     Indication: CYSTIC FIBROSIS
     Dosage: 75 MG, TID, QOM
     Route: 055

REACTIONS (5)
  - Product use issue [Not Recovered/Not Resolved]
  - Gastrointestinal disorder [Unknown]
  - Fall [Recovered/Resolved]
  - Cystic fibrosis [Unknown]
  - Quality of life decreased [Unknown]

NARRATIVE: CASE EVENT DATE: 202010
